FAERS Safety Report 7496222-6 (Version None)
Quarter: 2011Q2

REPORT INFORMATION
  Report Type: 
  Country: None (occurrence: None)
  Receive Date: 20110523
  Receipt Date: 20110517
  Transmission Date: 20111010
  Serious: Yes (Death, Other)
  Sender: FDA-Public Use
  Company Number: PHHY2011MX42332

PATIENT
  Age: 51 Year
  Sex: Male

DRUGS (3)
  1. CYCLOSPORINE [Suspect]
     Indication: RENAL TRANSPLANT
     Dosage: UNK
  2. AZATHIOPRINE [Concomitant]
     Indication: IMMUNOSUPPRESSION
  3. PREDNISONE [Concomitant]
     Indication: IMMUNOSUPPRESSION

REACTIONS (8)
  - FABRY'S DISEASE [None]
  - GASTROINTESTINAL HAEMORRHAGE [None]
  - COLONIC OBSTRUCTION [None]
  - ABDOMINAL SEPSIS [None]
  - RENAL GRAFT LOSS [None]
  - CONCOMITANT DISEASE PROGRESSION [None]
  - VASCULITIS [None]
  - LARGE INTESTINE PERFORATION [None]
